FAERS Safety Report 4635069-2 (Version None)
Quarter: 2005Q2

REPORT INFORMATION
  Report Type: 
  Country: None (occurrence: None)
  Receive Date: 20050414
  Receipt Date: 20050329
  Transmission Date: 20051028
  Serious: Yes (Death)
  Sender: FDA-Public Use
  Company Number: JP-ROCHE-400302

PATIENT
  Age: 95 Year
  Sex: Female

DRUGS (5)
  1. TAMIFLU [Suspect]
     Route: 048
     Dates: start: 20050322, end: 20050323
  2. NEOPHYLLIN [Concomitant]
     Route: 041
     Dates: start: 20050322, end: 20050323
  3. BISOLVON [Concomitant]
     Route: 041
     Dates: start: 20050322, end: 20050323
  4. MAXIPIME [Concomitant]
     Route: 041
     Dates: start: 20050322, end: 20050323
  5. DECADRON [Concomitant]
     Route: 041
     Dates: start: 20050322, end: 20050323

REACTIONS (3)
  - CARDIAC DISORDER [None]
  - CARDIAC FAILURE [None]
  - SUDDEN DEATH [None]
